FAERS Safety Report 18189494 (Version 1)
Quarter: 2020Q3

REPORT INFORMATION
  Report Type: Spontaneous
  Country: ES (occurrence: ES)
  Receive Date: 20200824
  Receipt Date: 20200824
  Transmission Date: 20201103
  Serious: Yes (Other)
  Sender: FDA-Public Use
  Company Number: ES-PFIZER INC-2020325700

PATIENT
  Age: 42 Year
  Sex: Female

DRUGS (1)
  1. SERTRALINE HCL [Suspect]
     Active Substance: SERTRALINE HYDROCHLORIDE
     Dosage: UNK

REACTIONS (5)
  - Mutism [Unknown]
  - Cerebrovascular accident [Unknown]
  - Quadriplegia [Unknown]
  - Reversible cerebral vasoconstriction syndrome [Not Recovered/Not Resolved]
  - Subarachnoid haemorrhage [Unknown]
